FAERS Safety Report 9364188 (Version 1)
Quarter: 2013Q2

REPORT INFORMATION
  Report Type: Spontaneous
  Country: US (occurrence: US)
  Receive Date: 20130624
  Receipt Date: 20130624
  Transmission Date: 20140414
  Serious: No
  Sender: FDA-Public Use
  Company Number: US-MYLANLABS-2013S1007092

PATIENT
  Sex: Female

DRUGS (10)
  1. TACROLIMUS CAPSULES [Suspect]
     Indication: RENAL TRANSPLANT
     Dosage: 2MG IN AM AND 3 MG IN PM
     Route: 048
     Dates: start: 2012, end: 2012
  2. TACROLIMUS CAPSULES [Suspect]
     Indication: PANCREAS TRANSPLANT
     Dosage: 2MG IN AM AND 3 MG IN PM
     Route: 048
     Dates: start: 2012, end: 2012
  3. MYFORTIC [Concomitant]
     Dates: start: 201011
  4. ACIPHEX [Concomitant]
     Dates: start: 201011
  5. PREDNISONE [Concomitant]
     Dates: start: 201011
  6. FOSAMAX [Concomitant]
     Dates: start: 201011
  7. VITAMIN D [Concomitant]
     Dates: start: 201011
  8. ASPIRIN (E.C.) [Concomitant]
  9. TYLENOL [Concomitant]
  10. METOPROLOL [Concomitant]
     Dates: start: 201011

REACTIONS (1)
  - Drug level fluctuating [Recovered/Resolved]
